FAERS Safety Report 12920638 (Version 3)
Quarter: 2016Q4

REPORT INFORMATION
  Report Type: Spontaneous
  Country: JP (occurrence: JP)
  Receive Date: 20161107
  Receipt Date: 20161118
  Transmission Date: 20170207
  Serious: Yes (Hospitalization, Other)
  Sender: FDA-Public Use
  Company Number: JP-ELI_LILLY_AND_COMPANY-JP201610003999

PATIENT
  Age: 85 Year
  Sex: Male
  Weight: 52 kg

DRUGS (8)
  1. TEGRETOL [Suspect]
     Active Substance: CARBAMAZEPINE
     Indication: DEMENTIA
     Dosage: UNK
     Route: 048
     Dates: end: 20161011
  2. URIEF [Suspect]
     Active Substance: SILODOSIN
     Indication: POLLAKIURIA
     Dosage: UNK
     Route: 048
     Dates: end: 20161011
  3. FORTEO [Suspect]
     Active Substance: TERIPARATIDE
     Indication: OSTEOPOROSIS
     Dosage: 20 UG, QD
     Route: 058
     Dates: start: 20160927, end: 20161003
  4. CEFAZOLIN [Suspect]
     Active Substance: CEFAZOLIN
     Indication: SURGERY
     Dosage: UNK
     Route: 042
     Dates: start: 20160916, end: 20160917
  5. TRIAZOLAM. [Suspect]
     Active Substance: TRIAZOLAM
     Indication: INSOMNIA
     Dosage: UNK
     Route: 048
     Dates: start: 20160927, end: 20160927
  6. LEVOFLOXACIN. [Suspect]
     Active Substance: LEVOFLOXACIN
     Indication: INFECTION PROPHYLAXIS
     Dosage: UNK
     Route: 048
     Dates: start: 20160925, end: 20160927
  7. ZYPREXA [Suspect]
     Active Substance: OLANZAPINE
     Indication: BIPOLAR DISORDER
     Dosage: 10 MG, QD
     Route: 048
     Dates: end: 20161011
  8. FERROUS SODIUM CITRATE [Suspect]
     Active Substance: SODIUM FERROUS CITRATE
     Indication: ANAEMIA
     Dosage: UNK
     Route: 048
     Dates: end: 20161002

REACTIONS (7)
  - Femur fracture [Unknown]
  - Fall [Recovered/Resolved]
  - Postoperative wound infection [Unknown]
  - Pyrexia [Unknown]
  - Haematoma [Recovered/Resolved]
  - Rash [Recovering/Resolving]
  - Oedema [Unknown]

NARRATIVE: CASE EVENT DATE: 20161003
